FAERS Safety Report 21676444 (Version 2)
Quarter: 2022Q4

REPORT INFORMATION
  Report Type: Report from Study
  Country: CN (occurrence: CN)
  Receive Date: 20221202
  Receipt Date: 20221209
  Transmission Date: 20230113
  Serious: Yes (Life-Threatening, Hospitalization, Other)
  Sender: FDA-Public Use
  Company Number: CN-BRISTOL-MYERS SQUIBB COMPANY-2022-143574

PATIENT
  Age: 70 Year
  Sex: Male

DRUGS (2)
  1. CARBOPLATIN [Suspect]
     Active Substance: CARBOPLATIN
     Indication: Non-small cell lung cancer
     Dosage: PRIOR TO ONSET OF THE EVENT, THE PATIENT RECEIVED ONLY ONE DOSE OF CARBOPLATIN.?ACTION TAKEN DOSE DE
     Route: 065
     Dates: start: 20221104
  2. PACLITAXEL [Suspect]
     Active Substance: PACLITAXEL
     Indication: Non-small cell lung cancer
     Dosage: PRIOR TO ONSET OF THE EVENT, THE PATIENT RECEIVED ONLY ONE DOSE OF PACLITAXEL?ACTION TAKEN DOSE DELA
     Route: 042
     Dates: start: 20221104

REACTIONS (2)
  - Sepsis [Not Recovered/Not Resolved]
  - Cardiac disorder [Not Recovered/Not Resolved]

NARRATIVE: CASE EVENT DATE: 20221123
